FAERS Safety Report 20938734 (Version 1)
Quarter: 2022Q2

REPORT INFORMATION
  Report Type: Spontaneous
  Country: CZ (occurrence: CZ)
  Receive Date: 20220609
  Receipt Date: 20220609
  Transmission Date: 20220721
  Serious: Yes (Other)
  Sender: FDA-Public Use
  Company Number: CZ-OTSUKA-2022_030245

PATIENT
  Age: 44 Year
  Sex: Female

DRUGS (2)
  1. TOLVAPTAN [Suspect]
     Active Substance: TOLVAPTAN
     Indication: Congenital cystic kidney disease
     Dosage: WITHIN ONE MONTH TITRATED UP TO 60MG MORNING
     Route: 065
     Dates: start: 202002
  2. TOLVAPTAN [Suspect]
     Active Substance: TOLVAPTAN
     Dosage: 30MG AFTERNOON
     Route: 065
     Dates: start: 202002

REACTIONS (6)
  - Polycystic liver disease [Unknown]
  - Renal failure [Unknown]
  - Glomerular filtration rate decreased [Unknown]
  - Hyperuricaemia [Unknown]
  - Nocturia [Recovering/Resolving]
  - Polyuria [Recovering/Resolving]

NARRATIVE: CASE EVENT DATE: 20200201
